FAERS Safety Report 6521779-9 (Version None)
Quarter: 2009Q4

REPORT INFORMATION
  Report Type: 
  Country: None (occurrence: None)
  Receive Date: 20091222
  Receipt Date: 20091207
  Transmission Date: 20100525
  Serious: Yes (Other)
  Sender: FDA-Public Use
  Company Number: DSA_42149_2009

PATIENT
  Age: 34 Year
  Sex: Male
  Weight: 70.3075 kg

DRUGS (2)
  1. ATIVAN [Suspect]
     Indication: DEHYDRATION
     Dosage: (DF ORAL)
     Route: 048
     Dates: end: 20090101
  2. XANAX [Suspect]
     Indication: ANXIETY
     Dosage: (2-3 TIMES DAILY AS NEEDED ORAL)
     Route: 048
     Dates: start: 20091001, end: 20091103

REACTIONS (11)
  - ANXIETY [None]
  - BALANCE DISORDER [None]
  - CHOKING SENSATION [None]
  - COORDINATION ABNORMAL [None]
  - DIZZINESS [None]
  - DRY MOUTH [None]
  - MALAISE [None]
  - PAIN [None]
  - TONGUE DRY [None]
  - VISION BLURRED [None]
  - WITHDRAWAL SYNDROME [None]
